FAERS Safety Report 8399025-3 (Version None)
Quarter: 2012Q2

REPORT INFORMATION
  Report Type: 
  Country: None (occurrence: None)
  Receive Date: 20120531
  Receipt Date: 20120518
  Transmission Date: 20120825
  Serious: Yes (Hospitalization)
  Sender: FDA-Public Use
  Company Number: US-ELI_LILLY_AND_COMPANY-US201204007528

PATIENT
  Age: 52 Year
  Sex: Male
  Weight: 112.47 kg

DRUGS (8)
  1. AXIRON [Suspect]
     Indication: HYPOGONADISM
     Dosage: 60 MG, UNK
     Route: 061
     Dates: start: 20120320
  2. METFORMIN HCL [Concomitant]
  3. OMEPRAZOLE [Concomitant]
  4. LANTUS [Concomitant]
  5. LISINOPRIL [Concomitant]
  6. JANUVIA [Concomitant]
  7. REGLAN [Concomitant]
  8. SEROQUEL [Concomitant]

REACTIONS (3)
  - SYNCOPE [None]
  - BLOOD TESTOSTERONE DECREASED [None]
  - SINUS TACHYCARDIA [None]
